FAERS Safety Report 6829660-2 (Version None)
Quarter: 2010Q3

REPORT INFORMATION
  Report Type: 
  Country: None (occurrence: None)
  Receive Date: 20100709
  Receipt Date: 20070425
  Transmission Date: 20110219
  Serious: No
  Sender: FDA-Public Use
  Company Number: US-PFIZER INC-2007014591

PATIENT
  Sex: Female
  Weight: 72.57 kg

DRUGS (4)
  1. CHANTIX [Suspect]
     Indication: SMOKING CESSATION THERAPY
     Route: 048
     Dates: start: 20070208, end: 20070218
  2. NEXIUM [Concomitant]
  3. ALL OTHER THERAPEUTIC PRODUCTS [Concomitant]
  4. NAPROXEN [Concomitant]
     Indication: ARTHROPATHY

REACTIONS (4)
  - AGEUSIA [None]
  - DRY MOUTH [None]
  - DYSGEUSIA [None]
  - ORAL DISCOMFORT [None]
